FAERS Safety Report 4553156-4 (Version None)
Quarter: 2005Q1

REPORT INFORMATION
  Report Type: 
  Country: None (occurrence: None)
  Receive Date: 20050114
  Receipt Date: 20050108
  Transmission Date: 20050727
  Serious: Yes (Death)
  Sender: FDA-Public Use
  Company Number: GB-GLAXOSMITHKLINE-B0363836A

PATIENT
  Age: 79 Year
  Sex: Female

DRUGS (10)
  1. DIGOXIN [Suspect]
     Indication: ATRIAL FIBRILLATION
     Dosage: 250MCG PER DAY
     Route: 048
     Dates: start: 20041002, end: 20041008
  2. FRUSEMIDE [Concomitant]
     Indication: CARDIAC FAILURE
     Dosage: 80MG PER DAY
     Route: 048
     Dates: start: 20041004
  3. GLICLAZIDE [Concomitant]
     Indication: DIABETES MELLITUS
     Dosage: 80MG PER DAY
     Route: 048
     Dates: start: 20041001
  4. DESLORATADINE [Concomitant]
     Indication: HYPERSENSITIVITY
     Dosage: 5MG PER DAY
     Route: 048
     Dates: start: 20030101
  5. METFORMIN HCL [Concomitant]
     Indication: DIABETES MELLITUS
     Dosage: 500MG PER DAY
     Route: 048
     Dates: start: 20030101
  6. SPIRONOLACTONE [Concomitant]
     Indication: CARDIAC FAILURE
     Dosage: 25MG PER DAY
     Route: 048
     Dates: start: 20041004
  7. POTASSIUM CHLORIDE [Concomitant]
     Indication: BLOOD POTASSIUM DECREASED
     Dosage: 1200MG PER DAY
     Route: 048
     Dates: start: 20041004
  8. METOCLOPRAMIDE [Concomitant]
     Indication: NAUSEA
     Route: 048
     Dates: start: 20041004
  9. LACTULOSE [Concomitant]
     Indication: CONSTIPATION
     Dosage: 10ML PER DAY
     Route: 048
     Dates: start: 20041004
  10. GAVISCON [Concomitant]
     Indication: DYSPEPSIA
     Route: 048
     Dates: start: 20041004

REACTIONS (4)
  - CARDIAC ARREST [None]
  - CARDIAC FAILURE [None]
  - SEPSIS [None]
  - THERAPEUTIC AGENT TOXICITY [None]
